FAERS Safety Report 7834095-X (Version None)
Quarter: 2011Q4

REPORT INFORMATION
  Report Type: 
  Country: None (occurrence: None)
  Receive Date: 20111024
  Receipt Date: 20111024
  Transmission Date: 20120403
  Serious: Yes (Life-Threatening)
  Sender: FDA-Public Use
  Company Number: None

PATIENT
  Sex: Female
  Weight: 92.532 kg

DRUGS (3)
  1. ADVAIR DISKUS 100/50 [Concomitant]
  2. COUMADIN [Concomitant]
  3. VORICONAZOLE [Suspect]
     Indication: ASPERGILLOMA
     Dosage: 100MG
     Route: 048
     Dates: start: 20111014, end: 20111022

REACTIONS (3)
  - CARDIAC FAILURE CONGESTIVE [None]
  - DYSPNOEA [None]
  - FATIGUE [None]
